FAERS Safety Report 13385067 (Version 1)
Quarter: 2017Q1

REPORT INFORMATION
  Report Type: Spontaneous
  Country: US (occurrence: US)
  Receive Date: 20170329
  Receipt Date: 20170329
  Transmission Date: 20170429
  Serious: No
  Sender: FDA-Public Use
  Company Number: US-IMPAX LABORATORIES, INC-2016-IPXL-02013

PATIENT
  Age: 73 Year
  Sex: Female

DRUGS (1)
  1. GLYBURIDE + METFORMIN [Suspect]
     Active Substance: GLYBURIDE\METFORMIN HYDROCHLORIDE
     Dosage: 5 MG / 500 MG

REACTIONS (2)
  - Neoplasm skin [Unknown]
  - Blood glucose fluctuation [Unknown]
